FAERS Safety Report 20659450 (Version 1)
Quarter: 2022Q1

REPORT INFORMATION
  Report Type: Spontaneous
  Country: US (occurrence: US)
  Receive Date: 20220331
  Receipt Date: 20220331
  Transmission Date: 20220424
  Serious: No
  Sender: FDA-Public Use
  Company Number: US-PFIZER INC-202100924305

PATIENT
  Age: 70 Year
  Sex: Female
  Weight: 64.41 kg

DRUGS (5)
  1. IBRANCE [Suspect]
     Active Substance: PALBOCICLIB
     Indication: Breast cancer metastatic
     Dosage: 125 MG, CYCLIC (125MG FOR A 21 DAY CYCLE)
  2. IBRANCE [Suspect]
     Active Substance: PALBOCICLIB
     Dosage: 100 MG, CYCLIC (100MG TABLET FOR A 21 DAY CYCLE)
  3. LETROZOLE [Suspect]
     Active Substance: LETROZOLE
     Indication: Benign breast neoplasm
     Dosage: 2.5 MG, 1X/DAY
     Dates: start: 201906
  4. LETROZOLE [Suspect]
     Active Substance: LETROZOLE
     Indication: Breast cancer
  5. XGEVA [Concomitant]
     Active Substance: DENOSUMAB
     Indication: Bone disorder
     Dosage: UNK, MONTHLY (TAKES ONCE A MONTH)
     Dates: start: 20190912

REACTIONS (3)
  - Lacrimation increased [Not Recovered/Not Resolved]
  - Rhinorrhoea [Recovering/Resolving]
  - Dizziness [Unknown]
